FAERS Safety Report 9202640 (Version 2)
Quarter: 2014Q1

REPORT INFORMATION
  Report Type: Spontaneous
  Country: US (occurrence: US)
  Receive Date: 20130401
  Receipt Date: 20140203
  Transmission Date: 20141002
  Serious: Yes (Hospitalization, Other)
  Sender: FDA-Public Use
  Company Number: US-BAYER-2013-039207

PATIENT
  Age: 22 Year
  Sex: Female

DRUGS (8)
  1. YAZ [Suspect]
     Dosage: UNK
     Dates: start: 200404, end: 200602
  2. YASMIN [Suspect]
     Dosage: UNK
     Dates: start: 200404, end: 200602
  3. OCELLA [Suspect]
     Dosage: UNK
     Dates: start: 200404, end: 200602
  4. GIANVI [Suspect]
     Dosage: UNK
     Dates: start: 200404, end: 200602
  5. TRAMADOL [Concomitant]
     Dosage: UNK
     Dates: start: 20060112
  6. MORPHINE [Concomitant]
  7. ZOFRAN [Concomitant]
  8. DILAUDID [Concomitant]

REACTIONS (7)
  - Cholecystectomy [None]
  - Cholecystitis acute [None]
  - Injury [None]
  - Pain [None]
  - Anhedonia [None]
  - Fear of disease [None]
  - Anxiety [None]
